FAERS Safety Report 24424565 (Version 1)
Quarter: 2024Q4

REPORT INFORMATION
  Report Type: Spontaneous
  Country: JP (occurrence: JP)
  Receive Date: 20241010
  Receipt Date: 20241010
  Transmission Date: 20250115
  Serious: Yes (Other)
  Sender: UCB
  Company Number: JP-UCBJ-CD202409404UCBPHAPROD

PATIENT
  Age: 10 Year
  Sex: Male

DRUGS (6)
  1. LEVETIRACETAM [Suspect]
     Active Substance: LEVETIRACETAM
     Indication: Partial seizures
     Route: 042
  2. FOSPHENYTOIN SODIUM [Concomitant]
     Active Substance: FOSPHENYTOIN SODIUM
     Indication: Partial seizures
     Dosage: UNK
     Route: 042
  3. PHENOBARBITAL [Concomitant]
     Active Substance: PHENOBARBITAL
     Indication: Acute encephalitis with refractory, repetitive partial seizures
     Dosage: UNK
  4. MIDAZOLAM [Concomitant]
     Active Substance: MIDAZOLAM
     Indication: Acute encephalitis with refractory, repetitive partial seizures
     Dosage: UNK
     Route: 042
  5. THIAMYLAL SODIUM [Concomitant]
     Active Substance: THIAMYLAL SODIUM
     Indication: Acute encephalitis with refractory, repetitive partial seizures
     Dosage: UNK
     Route: 042
  6. IMMUNE GLOBULIN NOS [Concomitant]
     Active Substance: IMMUNE GLOBULIN NOS
     Indication: Acute encephalitis with refractory, repetitive partial seizures
     Dosage: UNK

REACTIONS (2)
  - Epilepsy [Recovered/Resolved]
  - Visual impairment [Recovered/Resolved]
